FAERS Safety Report 5943231-1 (Version None)
Quarter: 2008Q4

REPORT INFORMATION
  Report Type: 
  Country: None (occurrence: None)
  Receive Date: 20081106
  Receipt Date: 20081103
  Transmission Date: 20090506
  Serious: Yes (Other)
  Sender: FDA-Public Use
  Company Number: US-ASTRAZENECA-2008UW12261

PATIENT
  Age: 36 Year
  Sex: Female
  Weight: 95.3 kg

DRUGS (32)
  1. SEROQUEL [Suspect]
     Indication: DEPRESSION
     Route: 048
     Dates: start: 20041027, end: 20060109
  2. RISPERDAL [Concomitant]
     Dates: start: 20050829
  3. LEXAPRO [Concomitant]
     Dates: start: 20040101
  4. WELLBUTRIN [Concomitant]
     Dates: start: 20060101, end: 20070101
  5. GLUCOPHAGE [Concomitant]
  6. RANITIDINE [Concomitant]
  7. ADIPEX [Concomitant]
  8. CYMBALTA [Concomitant]
  9. ALBUTEROL [Concomitant]
  10. SULFAMETHOXAZOLE [Concomitant]
  11. PROMETHAZINE [Concomitant]
  12. ORTHO EVRA [Concomitant]
  13. ZELNORM [Concomitant]
  14. LEVAQUIN [Concomitant]
  15. SINGULAIR [Concomitant]
  16. NAPROXEN [Concomitant]
  17. TEMAZEPAM [Concomitant]
  18. XOPENEX [Concomitant]
  19. HYDROCODONE/APAP [Concomitant]
  20. PROVENTIL [Concomitant]
  21. MUPIROCIN [Concomitant]
  22. PROPOXYPHENE NAPSYLATE AND ACETAMINOPHEN [Concomitant]
  23. PROAIR HFA [Concomitant]
  24. CLONIDINE [Concomitant]
  25. HELIDAC [Concomitant]
  26. FLUCONAZOLE [Concomitant]
  27. HYOSCYAMINE [Concomitant]
  28. METOCLOPRAMIDE [Concomitant]
  29. MIRTAZAPINE [Concomitant]
  30. ZOLPIDEM TARTRATE [Concomitant]
  31. AZITHROMYCIN [Concomitant]
  32. CIPROFLOXACIN [Concomitant]

REACTIONS (4)
  - DIABETES MELLITUS [None]
  - GALLBLADDER DISORDER [None]
  - HYPERTENSION [None]
  - OBESITY [None]
